FAERS Safety Report 4974417-0 (Version None)
Quarter: 2006Q2

REPORT INFORMATION
  Report Type: 
  Country: None (occurrence: None)
  Receive Date: 20060410
  Receipt Date: 20060403
  Transmission Date: 20061013
  Serious: Yes (Hospitalization, Other)
  Sender: FDA-Public Use
  Company Number: HQWYE46422MAR06

PATIENT
  Age: 4 Year
  Sex: Female

DRUGS (9)
  1. TAZOCIN (PIPERACILLIN/TAZOBACTAM, INJECTION) [Suspect]
     Indication: C-REACTIVE PROTEIN INCREASED
     Route: 041
  2. TAZOCIN (PIPERACILLIN/TAZOBACTAM, INJECTION) [Suspect]
     Indication: PYREXIA
     Route: 041
  3. ALL-TRANS RETINOIC ACID (ALL -TRANS RETINOIC ACID, ) [Concomitant]
     Dosage: SEE IMAGE
     Route: 048
  4. CARBENIN (BETAMIPRON/PANIPENEM, ) [Suspect]
     Indication: INFECTION
     Route: 041
  5. CEFTAZIDIME [Suspect]
     Indication: C-REACTIVE PROTEIN INCREASED
     Route: 041
  6. CEFTAZIDIME [Suspect]
     Indication: PYREXIA
     Route: 041
  7. NAFAMOSTAT MESILATE (NAFAMOSTAT MESILATE) [Concomitant]
  8. CYTARABINE [Concomitant]
  9. DAUNOMYCIN (DAUNORUBICIN) [Concomitant]

REACTIONS (3)
  - C-REACTIVE PROTEIN INCREASED [None]
  - HISTIOCYTOSIS HAEMATOPHAGIC [None]
  - INFECTION [None]
